FAERS Safety Report 7041833-5 (Version None)
Quarter: 2010Q4

REPORT INFORMATION
  Report Type: 
  Country: None (occurrence: None)
  Receive Date: 20101013
  Receipt Date: 20101006
  Transmission Date: 20110411
  Serious: Yes (Death, Hospitalization)
  Sender: FDA-Public Use
  Company Number: JP-ELI_LILLY_AND_COMPANY-JP201010001634

PATIENT
  Age: 77 Year
  Sex: Female

DRUGS (1)
  1. GEMZAR [Suspect]
     Indication: GALLBLADDER CANCER STAGE IV
     Route: 042

REACTIONS (4)
  - HEPATIC FAILURE [None]
  - NAUSEA [None]
  - RENAL FAILURE [None]
  - RENAL TUBULAR NECROSIS [None]
